FAERS Safety Report 24009577 (Version 1)
Quarter: 2024Q2

REPORT INFORMATION
  Report Type: Spontaneous
  Country: US (occurrence: US)
  Receive Date: 20240625
  Receipt Date: 20240625
  Transmission Date: 20240715
  Serious: Yes (Life-Threatening, Hospitalization, Other)
  Sender: FDA-Public Use
  Company Number: US-CHEPLA-2024007791

PATIENT
  Age: 61 Year
  Sex: Male

DRUGS (4)
  1. VALGANCICLOVIR [Suspect]
     Active Substance: VALGANCICLOVIR
     Indication: Antiviral prophylaxis
  2. GANCICLOVIR [Suspect]
     Active Substance: GANCICLOVIR
     Indication: Antiviral prophylaxis
  3. FOSCARNET [Suspect]
     Active Substance: FOSCARNET
     Indication: Antiviral prophylaxis
  4. LETERMOVIR [Suspect]
     Active Substance: LETERMOVIR
     Indication: Antiviral prophylaxis

REACTIONS (5)
  - Hallucination, visual [Unknown]
  - Hallucination [Unknown]
  - Acute myocardial infarction [Unknown]
  - Cardio-respiratory arrest [Unknown]
  - Creatinine renal clearance abnormal [Unknown]
